FAERS Safety Report 5594225-X (Version None)
Quarter: 2008Q1

REPORT INFORMATION
  Report Type: 
  Country: None (occurrence: None)
  Receive Date: 20080117
  Receipt Date: 20071214
  Transmission Date: 20080703
  Serious: Yes (Other)
  Sender: FDA-Public Use
  Company Number: US-BAYER-US-2007-034506

PATIENT
  Sex: Female

DRUGS (1)
  1. MIRENA [Suspect]
     Route: 015
     Dates: start: 20070425, end: 20070820

REACTIONS (3)
  - ABDOMINAL PAIN [None]
  - HYSTERECTOMY [None]
  - PHARMACEUTICAL PRODUCT COMPLAINT [None]
